FAERS Safety Report 12237011 (Version 1)
Quarter: 2016Q2

REPORT INFORMATION
  Report Type: Spontaneous
  Country: KR (occurrence: KR)
  Receive Date: 20160405
  Receipt Date: 20160405
  Transmission Date: 20160815
  Serious: Yes (Hospitalization)
  Sender: FDA-Public Use
  Company Number: KR-AMGEN-KORCT2016041016

PATIENT
  Age: 53 Year
  Sex: Male
  Weight: 90.5 kg

DRUGS (55)
  1. RITUXIMAB [Concomitant]
     Active Substance: RITUXIMAB
     Dosage: 799 MG, UNK
     Route: 042
     Dates: start: 20150624, end: 20150624
  2. LENOGRASTIM [Concomitant]
     Active Substance: LENOGRASTIM
     Dosage: 250 MUG, UNK
     Route: 058
     Dates: start: 20150723, end: 20150723
  3. LENOGRASTIM [Concomitant]
     Active Substance: LENOGRASTIM
     Dosage: 250 MUG, UNK
     Route: 058
     Dates: start: 20150903, end: 20150903
  4. G-LASTA [Suspect]
     Active Substance: PEGFILGRASTIM
     Dosage: 6 MG, 1X/3WEEKS
     Route: 058
     Dates: start: 20150827
  5. RITUXIMAB [Concomitant]
     Active Substance: RITUXIMAB
     Dosage: 814 MG, UNK
     Route: 042
     Dates: start: 20150423, end: 20150423
  6. RITUXIMAB [Concomitant]
     Active Substance: RITUXIMAB
     Dosage: 799 MG, UNK
     Route: 042
     Dates: start: 20150805, end: 20150805
  7. VINCRISTINE [Concomitant]
     Active Substance: VINCRISTINE
     Dosage: 2 MG, UNK
     Route: 042
     Dates: start: 20150603, end: 20150603
  8. DOXORUBICIN [Concomitant]
     Active Substance: DOXORUBICIN
     Dosage: 107 MG, UNK
     Route: 042
     Dates: start: 20150513, end: 20150513
  9. DOXORUBICIN [Concomitant]
     Active Substance: DOXORUBICIN
     Dosage: 107 MG, UNK
     Route: 042
     Dates: start: 20150805, end: 20150805
  10. LENOGRASTIM [Concomitant]
     Active Substance: LENOGRASTIM
     Dosage: 250 MUG, UNK
     Route: 058
     Dates: start: 20150813, end: 20150813
  11. G-LASTA [Suspect]
     Active Substance: PEGFILGRASTIM
     Dosage: 6 MG, 1X/3WEEKS
     Route: 058
     Dates: start: 20150514
  12. RITUXIMAB [Concomitant]
     Active Substance: RITUXIMAB
     Dosage: 799 MG, UNK
     Route: 042
     Dates: start: 20150513, end: 20150513
  13. RITUXIMAB [Concomitant]
     Active Substance: RITUXIMAB
     Dosage: 791 MG, UNK
     Route: 042
     Dates: start: 20150603, end: 20150603
  14. RITUXIMAB [Concomitant]
     Active Substance: RITUXIMAB
     Dosage: 800 MG, UNK
     Route: 042
     Dates: start: 20150923, end: 20150923
  15. VINCRISTINE [Concomitant]
     Active Substance: VINCRISTINE
     Dosage: 2 MG, UNK
     Route: 042
     Dates: start: 20150826, end: 20150826
  16. CYCLOPHOSPHAMIDE. [Concomitant]
     Active Substance: CYCLOPHOSPHAMIDE
     Dosage: 1598 MG, UNK
     Route: 042
     Dates: start: 20150624, end: 20150624
  17. DOXORUBICIN [Concomitant]
     Active Substance: DOXORUBICIN
     Dosage: 107 MG, UNK
     Route: 042
     Dates: start: 20150715, end: 20150715
  18. PREDNISOLONE. [Concomitant]
     Active Substance: PREDNISOLONE
     Dosage: 100 MG, UNK
     Route: 048
     Dates: start: 20150423, end: 20150427
  19. FILGRASTIM [Concomitant]
     Active Substance: FILGRASTIM
     Dosage: 300 MUG, UNK
     Route: 058
     Dates: start: 20150702, end: 20150702
  20. RITUXIMAB [Concomitant]
     Active Substance: RITUXIMAB
     Dosage: 791 MG, UNK
     Route: 042
     Dates: start: 20150826, end: 20150826
  21. CYCLOPHOSPHAMIDE. [Concomitant]
     Active Substance: CYCLOPHOSPHAMIDE
     Dosage: 1628 MG, UNK
     Route: 042
     Dates: start: 20150423, end: 20150423
  22. CYCLOPHOSPHAMIDE. [Concomitant]
     Active Substance: CYCLOPHOSPHAMIDE
     Dosage: 1200 MG, UNK
     Route: 042
     Dates: start: 20150923, end: 20150923
  23. DOXORUBICIN [Concomitant]
     Active Substance: DOXORUBICIN
     Dosage: 80 MG, UNK
     Route: 042
     Dates: start: 20150923, end: 20150923
  24. G-LASTA [Suspect]
     Active Substance: PEGFILGRASTIM
     Indication: FEBRILE NEUTROPENIA
     Dosage: 6 MG, 1X/3WEEKS
     Route: 058
     Dates: start: 20150425
  25. G-LASTA [Suspect]
     Active Substance: PEGFILGRASTIM
     Dosage: 6 MG, 1X/3WEEKS
     Route: 058
     Dates: start: 20150604
  26. G-LASTA [Suspect]
     Active Substance: PEGFILGRASTIM
     Dosage: 6 MG, 1X/3WEEKS
     Route: 058
     Dates: start: 20150716
  27. G-LASTA [Suspect]
     Active Substance: PEGFILGRASTIM
     Dosage: 6 MG, 1X/3WEEKS
     Route: 058
     Dates: start: 20150924
  28. VINCRISTINE [Concomitant]
     Active Substance: VINCRISTINE
     Dosage: 2 MG, UNK
     Route: 042
     Dates: start: 20150715, end: 20150715
  29. CYCLOPHOSPHAMIDE. [Concomitant]
     Active Substance: CYCLOPHOSPHAMIDE
     Dosage: 1582 MG, UNK
     Route: 042
     Dates: start: 20150826, end: 20150826
  30. DOXORUBICIN [Concomitant]
     Active Substance: DOXORUBICIN
     Dosage: 109 MG, UNK
     Route: 042
     Dates: start: 20150423, end: 20150423
  31. DOXORUBICIN [Concomitant]
     Active Substance: DOXORUBICIN
     Dosage: 105 MG, UNK
     Route: 042
     Dates: start: 20150826, end: 20150826
  32. PREDNISOLONE. [Concomitant]
     Active Substance: PREDNISOLONE
     Dosage: 100 MG, UNK
     Route: 048
     Dates: start: 20150603, end: 20150607
  33. CYCLOPHOSPHAMIDE. [Concomitant]
     Active Substance: CYCLOPHOSPHAMIDE
     Dosage: 1598 MG, UNK
     Route: 042
     Dates: start: 20150715, end: 20150715
  34. CYCLOPHOSPHAMIDE. [Concomitant]
     Active Substance: CYCLOPHOSPHAMIDE
     Dosage: 1598 MG, UNK
     Route: 042
     Dates: start: 20150805, end: 20150805
  35. DOXORUBICIN [Concomitant]
     Active Substance: DOXORUBICIN
     Dosage: 106 MG, UNK
     Route: 042
     Dates: start: 20150603, end: 20150603
  36. FAMOTIDINE. [Concomitant]
     Active Substance: FAMOTIDINE
     Dosage: 40 MG, UNK
     Route: 048
     Dates: start: 20150420
  37. G-LASTA [Suspect]
     Active Substance: PEGFILGRASTIM
     Dosage: 6 MG, 1X/3WEEKS
     Route: 058
     Dates: start: 20150806
  38. VINCRISTINE [Concomitant]
     Active Substance: VINCRISTINE
     Dosage: 2 MG, UNK
     Route: 042
     Dates: start: 20150423, end: 20150423
  39. VINCRISTINE [Concomitant]
     Active Substance: VINCRISTINE
     Dosage: 2 MG, UNK
     Route: 042
     Dates: start: 20150624, end: 20150624
  40. VINCRISTINE [Concomitant]
     Active Substance: VINCRISTINE
     Dosage: 2 MG, UNK
     Route: 042
     Dates: start: 20150923, end: 20150923
  41. CYCLOPHOSPHAMIDE. [Concomitant]
     Active Substance: CYCLOPHOSPHAMIDE
     Dosage: 1598 MG, UNK
     Route: 042
     Dates: start: 20150513, end: 20150513
  42. DOXORUBICIN [Concomitant]
     Active Substance: DOXORUBICIN
     Dosage: 107 MG, UNK
     Route: 042
     Dates: start: 20150624, end: 20150624
  43. PREDNISOLONE. [Concomitant]
     Active Substance: PREDNISOLONE
     Dosage: 100 MG, UNK
     Route: 048
     Dates: start: 20150715, end: 20150719
  44. PREDNISOLONE. [Concomitant]
     Active Substance: PREDNISOLONE
     Dosage: 100 MG, UNK
     Route: 048
     Dates: start: 20150826, end: 20150830
  45. FILGRASTIM [Concomitant]
     Active Substance: FILGRASTIM
     Dosage: 300 MUG, UNK
     Route: 058
     Dates: start: 20150521, end: 20150521
  46. G-LASTA [Suspect]
     Active Substance: PEGFILGRASTIM
     Dosage: 6 MG, 1X/3WEEKS
     Route: 058
     Dates: start: 20150625
  47. RITUXIMAB [Concomitant]
     Active Substance: RITUXIMAB
     Dosage: 799 MG, UNK
     Route: 042
     Dates: start: 20150715, end: 20150715
  48. VINCRISTINE [Concomitant]
     Active Substance: VINCRISTINE
     Dosage: 2 MG, UNK
     Route: 042
     Dates: start: 20150513, end: 20150513
  49. VINCRISTINE [Concomitant]
     Active Substance: VINCRISTINE
     Dosage: 2 MG, UNK
     Route: 042
     Dates: start: 20150805, end: 20150805
  50. CYCLOPHOSPHAMIDE. [Concomitant]
     Active Substance: CYCLOPHOSPHAMIDE
     Dosage: 1583 MG, UNK
     Route: 042
     Dates: start: 20150603, end: 20150603
  51. PREDNISOLONE. [Concomitant]
     Active Substance: PREDNISOLONE
     Dosage: 100 MG, UNK
     Route: 048
     Dates: start: 20150513, end: 20150517
  52. PREDNISOLONE. [Concomitant]
     Active Substance: PREDNISOLONE
     Dosage: 100 MG, UNK
     Route: 048
     Dates: start: 20150624, end: 20150628
  53. PREDNISOLONE. [Concomitant]
     Active Substance: PREDNISOLONE
     Dosage: 100 MG, UNK
     Route: 048
     Dates: start: 20150624, end: 20150628
  54. PREDNISOLONE. [Concomitant]
     Active Substance: PREDNISOLONE
     Dosage: 100 MG, UNK
     Route: 048
     Dates: start: 20150805, end: 20150809
  55. PREDNISOLONE. [Concomitant]
     Active Substance: PREDNISOLONE
     Dosage: 100 MG, UNK
     Route: 042
     Dates: start: 20150923, end: 20150927

REACTIONS (1)
  - Neutropenia [Recovered/Resolved]

NARRATIVE: CASE EVENT DATE: 20150923
